FAERS Safety Report 17419477 (Version 1)
Quarter: 2020Q1

REPORT INFORMATION
  Report Type: Spontaneous
  Country: US (occurrence: US)
  Receive Date: 20200214
  Receipt Date: 20200214
  Transmission Date: 20200409
  Serious: Yes (Hospitalization)
  Sender: FDA-Public Use
  Company Number: None

PATIENT
  Age: 65 Year
  Sex: Female
  Weight: 116 kg

DRUGS (17)
  1. BECLOMETHASONE INHALER [Concomitant]
  2. CHOLECALCIFEROL 2000 UNITS [Concomitant]
  3. OMEPRAZOLE 20 MG [Concomitant]
     Active Substance: OMEPRAZOLE
  4. RIVAROXABAN [Suspect]
     Active Substance: RIVAROXABAN
     Indication: DEEP VEIN THROMBOSIS
     Route: 048
  5. ASPIRIN 81 MG [Concomitant]
     Active Substance: ASPIRIN
  6. MONTELUKAST 10 MG [Concomitant]
     Active Substance: MONTELUKAST SODIUM
  7. ALBUTEROL INHALER [Concomitant]
     Active Substance: ALBUTEROL
  8. SYMBICORT [Concomitant]
     Active Substance: BUDESONIDE\FORMOTEROL FUMARATE DIHYDRATE
  9. PENTOSAN 100 MG [Concomitant]
  10. ROSUVASTATIN 20 MG [Concomitant]
     Active Substance: ROSUVASTATIN
  11. SOTALOL 80 MG [Concomitant]
     Active Substance: SOTALOL
  12. EMPAGLIFLOZIN LINAGLIPTIN 10/5 [Concomitant]
  13. HYDROCORTISONE 10 MG [Concomitant]
  14. ALENDRONATE 70 MG [Concomitant]
     Active Substance: ALENDRONATE SODIUM
  15. HYDROCHLOROTHIAZIDE 12.5 [Concomitant]
  16. CLOPIDOGREL [Suspect]
     Active Substance: CLOPIDOGREL BISULFATE
     Indication: CORONARY ARTERY DISEASE
     Route: 048
  17. ENALAPRIL 20 [Concomitant]
     Active Substance: ENALAPRIL

REACTIONS (8)
  - Hypotension [None]
  - Haemoglobin decreased [None]
  - Faeces discoloured [None]
  - Asthenia [None]
  - Anaemia [None]
  - Fatigue [None]
  - Dyspnoea [None]
  - Gastrointestinal haemorrhage [None]

NARRATIVE: CASE EVENT DATE: 20191008
